FAERS Safety Report 18729204 (Version 1)
Quarter: 2021Q1

REPORT INFORMATION
  Report Type: Spontaneous
  Country: FR (occurrence: FR)
  Receive Date: 20210112
  Receipt Date: 20210112
  Transmission Date: 20210419
  Serious: Yes (Other)
  Sender: FDA-Public Use
  Company Number: FR-TEVA-2020-FR-1865520

PATIENT
  Age: 54 Year
  Sex: Female

DRUGS (3)
  1. LEVOTHYROX [Concomitant]
     Active Substance: LEVOTHYROXINE
     Indication: THYROIDECTOMY
     Dosage: UNKNOWN
     Route: 048
  2. IBUPROFENE [Suspect]
     Active Substance: IBUPROFEN
     Indication: MIGRAINE
     Dosage: 400 MG
     Route: 048
     Dates: start: 201903, end: 201903
  3. UN?ALFA [Concomitant]
     Active Substance: ALFACALCIDOL
     Indication: THYROIDECTOMY
     Dosage: UNKNOWN
     Route: 048

REACTIONS (2)
  - Angioedema [Recovered/Resolved]
  - Dysphagia [Recovered/Resolved]

NARRATIVE: CASE EVENT DATE: 201903
